FAERS Safety Report 8018271-1 (Version None)
Quarter: 2012Q1

REPORT INFORMATION
  Report Type: 
  Country: None (occurrence: None)
  Receive Date: 20120103
  Receipt Date: 20111227
  Transmission Date: 20120608
  Serious: Yes (Death, Hospitalization, Other)
  Sender: FDA-Public Use
  Company Number: JP-BAYER-201013334BYL

PATIENT
  Age: 88 Year
  Sex: Male
  Weight: 48 kg

DRUGS (7)
  1. NEXAVAR [Suspect]
     Indication: HEPATIC NEOPLASM MALIGNANT
     Dosage: 200 MG, QOD
     Route: 048
     Dates: start: 20100402, end: 20100406
  2. NEXAVAR [Suspect]
     Dosage: 200 MG, QOD
     Route: 048
     Dates: start: 20100603, end: 20100627
  3. NEXAVAR [Suspect]
     Dosage: 200 MG, QOD
     Route: 048
     Dates: start: 20100513, end: 20100525
  4. URSO 250 [Concomitant]
     Dosage: DAILY DOSE 300 MG
     Route: 048
     Dates: start: 20100602
  5. NEXAVAR [Suspect]
     Dosage: 400 MG, QOD
     Route: 048
     Dates: start: 20100408, end: 20100511
  6. URSO 250 [Concomitant]
     Indication: LIVER DISORDER
     Dosage: DAILY DOSE 150 MG
     Route: 048
     Dates: start: 20100512, end: 20100602
  7. HERBAL PREPARATION [Concomitant]
     Dosage: DAILY DOSE 7.5 G
     Route: 048
     Dates: start: 20100602

REACTIONS (3)
  - PALMAR-PLANTAR ERYTHRODYSAESTHESIA SYNDROME [None]
  - SEPSIS [None]
  - DIARRHOEA [None]
